FAERS Safety Report 9896376 (Version 1)
Quarter: 2014Q1

REPORT INFORMATION
  Report Type: Spontaneous
  Country: US (occurrence: US)
  Receive Date: 20140213
  Receipt Date: 20140213
  Transmission Date: 20141002
  Serious: No
  Sender: FDA-Public Use
  Company Number: US-BRISTOL-MYERS SQUIBB COMPANY-19099852

PATIENT
  Age: 51 Year
  Sex: Female
  Weight: 63.94 kg

DRUGS (14)
  1. ABATACEPT SUBQ INJECTION 125MG/ML [Suspect]
     Indication: RHEUMATOID ARTHRITIS
     Route: 058
     Dates: start: 200907
  2. CELEBREX [Concomitant]
  3. CENTRUM [Concomitant]
  4. CITRACAL + D [Concomitant]
  5. COLACE [Concomitant]
  6. ESTRACE CREAM [Concomitant]
  7. FOLIC ACID [Concomitant]
  8. KLONOPIN [Concomitant]
  9. MACROBID [Concomitant]
  10. METHOTREXATE [Concomitant]
  11. PREDNISONE [Concomitant]
  12. PREMARIN [Concomitant]
  13. PRILOSEC [Concomitant]
  14. TOFRANIL [Concomitant]

REACTIONS (1)
  - Urinary tract infection [Unknown]
